FAERS Safety Report 17521183 (Version 1)
Quarter: 2020Q1

REPORT INFORMATION
  Report Type: Report from Study
  Country: US (occurrence: US)
  Receive Date: 20200310
  Receipt Date: 20200310
  Transmission Date: 20200409
  Serious: Yes (Death)
  Sender: FDA-Public Use
  Company Number: US-PFIZER INC-2020100703

PATIENT

DRUGS (3)
  1. FILGRASTIM [Concomitant]
     Active Substance: FILGRASTIM
     Dosage: 5 UG/KG, ON DAYS 6 TO 14
  2. TOPOTECAN HYDROCHLORIDE. [Suspect]
     Active Substance: TOPOTECAN HYDROCHLORIDE
     Indication: SMALL CELL LUNG CANCER
     Dosage: 1 MG/M2, DAILY X 5 DAYS
  3. PACLITAXEL. [Suspect]
     Active Substance: PACLITAXEL
     Indication: SMALL CELL LUNG CANCER
     Dosage: 230 MG/M2, CYLIC (DAY 1)

REACTIONS (1)
  - Sepsis [Fatal]
